FAERS Safety Report 19063952 (Version 5)
Quarter: 2022Q1

REPORT INFORMATION
  Report Type: Spontaneous
  Country: US (occurrence: US)
  Receive Date: 20210326
  Receipt Date: 20220127
  Transmission Date: 20220423
  Serious: Yes (Other)
  Sender: FDA-Public Use
  Company Number: US-AMGEN-USASP2021043020

PATIENT
  Age: 61 Year
  Sex: Female
  Weight: 56.68 kg

DRUGS (39)
  1. PROLIA [Suspect]
     Active Substance: DENOSUMAB
     Indication: Osteoporosis postmenopausal
     Dosage: 60 MILLIGRAM, Q6MO
     Route: 058
     Dates: start: 20150623, end: 20181114
  2. TYLENOL [Concomitant]
     Active Substance: ACETAMINOPHEN
     Dosage: 1000 MILLIGRAM, QD
  3. ZITHROMAX [Concomitant]
     Active Substance: AZITHROMYCIN DIHYDRATE
     Dosage: 250 MILLIGRAM, BID
  4. ZITHROMAX [Concomitant]
     Active Substance: AZITHROMYCIN DIHYDRATE
     Dosage: UNK, QD
  5. BIOTIN [Concomitant]
     Active Substance: BIOTIN
     Dosage: 600 MILLIGRAM, QD
  6. CALCIUM CARBONATE [Concomitant]
     Active Substance: CALCIUM CARBONATE
     Dosage: AS DIRECTED
  7. VITAMIN D3 [Concomitant]
     Active Substance: CHOLECALCIFEROL
     Dosage: 1000 UNIT, QD
  8. ESTRACE [Concomitant]
     Active Substance: ESTRADIOL
     Dosage: 1 GRAM, QWK
  9. FISH OIL [Concomitant]
     Active Substance: FISH OIL
     Dosage: UNK
     Dates: end: 20130627
  10. MOBIC [Concomitant]
     Active Substance: MELOXICAM
     Dosage: 15 MILLIGRAM, QD
  11. THERAGRAN [ASCORBIC ACID;CALCIUM PANTOTHENATE;CYANOCOBALAMIN;ERGOCALCI [Concomitant]
     Dosage: UNK UNK, QD
     Route: 048
  12. PNEUMOCOCCAL VACCINE POLYVALENT [Concomitant]
     Active Substance: PNEUMOCOCCAL VACCINE POLYVALENT
     Dosage: UNK
  13. MELOXICAM [Concomitant]
     Active Substance: MELOXICAM
     Dosage: UNK UNK, AS NECESSARY
  14. VITAMIN C [Concomitant]
     Active Substance: ASCORBIC ACID
     Dosage: UNK
  15. CHOLECALCIFEROL [Concomitant]
     Active Substance: CHOLECALCIFEROL
     Dosage: UNK
  16. CALCIUM [Concomitant]
     Active Substance: CALCIUM
     Dosage: UNK
  17. ZINC [Concomitant]
     Active Substance: ZINC
     Dosage: UNK
  18. VITAMINS [Concomitant]
     Active Substance: VITAMINS
     Dosage: UNK
  19. APPLE CIDER VINEGAR [Concomitant]
     Active Substance: APPLE CIDER VINEGAR
     Dosage: UNK
  20. LUTEIN [Concomitant]
     Active Substance: LUTEIN
     Dosage: UNK
  21. HYDROCODONE [Concomitant]
     Active Substance: HYDROCODONE
     Dosage: UNK
  22. SODIUM CHLORIDE [Concomitant]
     Active Substance: SODIUM CHLORIDE
  23. EXCEDRIN MIGRAINE [Concomitant]
     Active Substance: ACETAMINOPHEN\ASPIRIN\CAFFEINE
     Indication: Pain
     Dosage: 250-250-65 MG, QD (ONE TABLET BY MOUTH)
  24. VITAMINS [Concomitant]
     Active Substance: VITAMINS
     Dosage: UNK UNK, QD
     Route: 048
  25. CELEBREX [Concomitant]
     Active Substance: CELECOXIB
     Dosage: 200 MILLIGRAM, QD
     Route: 048
  26. LUTEIN ADVANCED [Concomitant]
     Dosage: UNK UNK, QD
     Route: 048
  27. NIACIN [Concomitant]
     Active Substance: NIACIN
     Dosage: 500 MILLIGRAM, QD
     Route: 048
  28. VALIUM [Concomitant]
     Active Substance: DIAZEPAM
     Indication: Anxiety
     Dosage: 5 MILLIGRAM, QD
     Route: 048
  29. ROBAXIN [Concomitant]
     Active Substance: METHOCARBAMOL
     Dosage: 500 MILLIGRAM, QD
     Route: 048
  30. PREDNISOLONE [Concomitant]
     Active Substance: PREDNISOLONE
     Dosage: 6 ON DAY 1, 5 ON DAY 2, 4 ON DAY 3, 3 ON DAY 4, 2 ON DAY 5, AND 1 ON DAY 6 THEN STOP
  31. XYLOCAINE [Concomitant]
     Active Substance: LIDOCAINE HYDROCHLORIDE
     Dosage: APPLY 1 APPLICATION TOPICALLY AS NEEDED
     Route: 061
  32. BACTROBAN [Concomitant]
     Active Substance: MUPIROCIN\MUPIROCIN CALCIUM
     Dosage: UNK UNK, BID
     Route: 045
  33. MIRALAX [Concomitant]
     Active Substance: POLYETHYLENE GLYCOL 3350
     Dosage: 17 GRAM, AS NECESSARY
     Route: 048
  34. TRULANCE [Concomitant]
     Active Substance: PLECANATIDE
     Dosage: 3 MILLIGRAM, QD
     Route: 048
  35. GOLYTELY [Concomitant]
     Active Substance: POLYETHYLENE GLYCOL 3350\POTASSIUM CHLORIDE\SODIUM BICARBONATE\SODIUM CHLORIDE\SODIUM SULFATE
     Dosage: 4 MILLILITER, QD
     Route: 048
  36. NORCO [Concomitant]
     Active Substance: ACETAMINOPHEN\HYDROCODONE BITARTRATE
     Dosage: 5-325 MG, Q8H
  37. ZYRTEC [Concomitant]
     Active Substance: CETIRIZINE HYDROCHLORIDE
     Dosage: 10 MILLIGRAM, QD
     Route: 048
  38. FLONASE [Concomitant]
     Active Substance: FLUTICASONE PROPIONATE
     Dosage: 50 MICROGRAM, QD
     Route: 045
  39. ANTIVERT [Concomitant]
     Active Substance: MECLIZINE HYDROCHLORIDE
     Indication: Dizziness
     Dosage: 12.5 MILLIGRAM, QD
     Route: 048

REACTIONS (60)
  - Osteonecrosis of jaw [Unknown]
  - Hip arthroplasty [Unknown]
  - Post procedural haemorrhage [Unknown]
  - Pneumonia [Unknown]
  - Pulmonary contusion [Unknown]
  - Craniocerebral injury [Unknown]
  - Gingival bleeding [Unknown]
  - Gingival discolouration [Unknown]
  - Gingival pain [Unknown]
  - Illness [Unknown]
  - Device physical property issue [Unknown]
  - Dental caries [Unknown]
  - Tooth extraction [Unknown]
  - Concussion [Unknown]
  - Oral herpes [Unknown]
  - Gingival discomfort [Recovering/Resolving]
  - Accident [Unknown]
  - Loose tooth [Unknown]
  - Pulpitis dental [Recovering/Resolving]
  - Device breakage [Unknown]
  - Tooth socket haemorrhage [Unknown]
  - Sinusitis [Unknown]
  - Headache [Unknown]
  - Epicondylitis [Unknown]
  - Upper respiratory tract infection [Unknown]
  - Musculoskeletal chest pain [Unknown]
  - Back pain [Unknown]
  - Cough [Unknown]
  - Cervical dysplasia [Unknown]
  - Osteoarthritis [Unknown]
  - Nystagmus [Unknown]
  - Post concussion syndrome [Unknown]
  - Spinal osteoarthritis [Unknown]
  - Skin lesion [Unknown]
  - Chest pain [Unknown]
  - Anaemia [Unknown]
  - Varicose vein [Unknown]
  - Lymphadenopathy [Unknown]
  - Irritable bowel syndrome [Unknown]
  - Rotator cuff syndrome [Unknown]
  - Gastrooesophageal reflux disease [Unknown]
  - Abdominal pain [Unknown]
  - Bronchitis [Unknown]
  - Haemorrhoids [Unknown]
  - Post-traumatic neck syndrome [Unknown]
  - Folliculitis [Unknown]
  - Viral upper respiratory tract infection [Unknown]
  - Skin laceration [Unknown]
  - Exposure to SARS-CoV-2 [Unknown]
  - Atrophic vulvovaginitis [Unknown]
  - Muscle strain [Unknown]
  - Road traffic accident [Unknown]
  - Blood calcium decreased [Unknown]
  - Blood glucose increased [Unknown]
  - Arthritis reactive [Unknown]
  - Glycosylated haemoglobin increased [Unknown]
  - Blood urea decreased [Unknown]
  - Red blood cell count increased [Unknown]
  - Monocyte count increased [Unknown]
  - Abdominal pain lower [Unknown]

NARRATIVE: CASE EVENT DATE: 20150101
